FAERS Safety Report 23267005 (Version 1)
Quarter: 2023Q4

REPORT INFORMATION
  Report Type: Spontaneous
  Country: None (occurrence: CN)
  Receive Date: 20231206
  Receipt Date: 20231206
  Transmission Date: 20240109
  Serious: Yes (Life-Threatening, Hospitalization, Other)
  Sender: FDA-Public Use
  Company Number: CN-Jiangsu Hansoh Pharmaceutical Co., Ltd-2149036

PATIENT
  Age: 55 Year
  Sex: Female
  Weight: 58 kg

DRUGS (3)
  1. GEMCITABINE [Suspect]
     Active Substance: GEMCITABINE
     Indication: Neoplasm malignant
     Route: 041
     Dates: start: 20231103, end: 20231103
  2. CARBOPLATIN [Suspect]
     Active Substance: CARBOPLATIN
     Route: 041
     Dates: start: 20231103, end: 20231103
  3. BEVACIZUMAB [Suspect]
     Active Substance: BEVACIZUMAB
     Route: 041
     Dates: start: 20231104, end: 20231104

REACTIONS (2)
  - Myelosuppression [Recovering/Resolving]
  - Infection [Unknown]

NARRATIVE: CASE EVENT DATE: 20231115
